FAERS Safety Report 6505040-4 (Version None)
Quarter: 2009Q4

REPORT INFORMATION
  Report Type: 
  Country: None (occurrence: None)
  Receive Date: 20091218
  Receipt Date: 20091210
  Transmission Date: 20100525
  Serious: Yes (Other)
  Sender: FDA-Public Use
  Company Number: DE-ASTRAZENECA-2009SE31757

PATIENT
  Sex: Female

DRUGS (4)
  1. NAROPIN [Suspect]
     Indication: ANAESTHESIA
     Route: 008
  2. NAROPIN [Suspect]
     Indication: POSTOPERATIVE ANALGESIA
     Route: 008
  3. NAROPIN [Suspect]
     Dosage: 8 ML/H, TOTAL 400 MG WAS APPLIED
     Route: 008
  4. NAROPIN [Suspect]
     Dosage: 8 ML/H, TOTAL 400 MG WAS APPLIED
     Route: 008

REACTIONS (3)
  - BRAIN STEM SYNDROME [None]
  - PARAPLEGIA [None]
  - SOMNOLENCE [None]
